FAERS Safety Report 7399387-X (Version None)
Quarter: 2011Q2

REPORT INFORMATION
  Report Type: 
  Country: None (occurrence: None)
  Receive Date: 20110407
  Receipt Date: 20110324
  Transmission Date: 20111010
  Serious: Yes (Other)
  Sender: FDA-Public Use
  Company Number: PHHY2010JP65721

PATIENT
  Age: 11 Year
  Sex: Female

DRUGS (1)
  1. TEGRETOL [Suspect]
     Indication: EPILEPSY
     Route: 048

REACTIONS (6)
  - DIPLOPIA [None]
  - COMA [None]
  - VERTIGO [None]
  - HEADACHE [None]
  - ANTICONVULSANT DRUG LEVEL INCREASED [None]
  - NAUSEA [None]
